FAERS Safety Report 23021378 (Version 1)
Quarter: 2023Q4

REPORT INFORMATION
  Report Type: Spontaneous
  Country: US (occurrence: US)
  Receive Date: 20231003
  Receipt Date: 20231003
  Transmission Date: 20240110
  Serious: No
  Sender: FDA-Public Use
  Company Number: US-AMGEN-USASP2023172854

PATIENT

DRUGS (5)
  1. AIMOVIG [Suspect]
     Active Substance: ERENUMAB-AOOE
     Indication: Product used for unknown indication
     Dosage: UNK, QMO
     Route: 065
  2. UBRELVY [Concomitant]
     Active Substance: UBROGEPANT
     Dosage: UNK
  3. Triptan [Concomitant]
     Dosage: UNK
  4. METOCLOPRAMIDE [Concomitant]
     Active Substance: METOCLOPRAMIDE
  5. ZOFRAN [Concomitant]
     Active Substance: ONDANSETRON HYDROCHLORIDE

REACTIONS (1)
  - Constipation [Unknown]
